FAERS Safety Report 6924283-9 (Version None)
Quarter: 2010Q3

REPORT INFORMATION
  Report Type: 
  Country: None (occurrence: None)
  Receive Date: 20100811
  Receipt Date: 20100811
  Transmission Date: 20110219
  Serious: Yes (Hospitalization)
  Sender: FDA-Public Use
  Company Number: None

PATIENT
  Age: 78 Year
  Sex: Male
  Weight: 90.72 kg

DRUGS (1)
  1. HYDROCHLOROTHIAZIDE [Suspect]
     Indication: OEDEMA
     Dosage: 12.5 MG EVERY DAY PO
     Route: 048
     Dates: start: 20090506, end: 20090906

REACTIONS (6)
  - AMNESIA [None]
  - ASTHENIA [None]
  - CONVULSION [None]
  - HYPONATRAEMIA [None]
  - HYPOPHAGIA [None]
  - URINARY TRACT INFECTION [None]
